FAERS Safety Report 16391175 (Version 2)
Quarter: 2019Q2

REPORT INFORMATION
  Report Type: Spontaneous
  Country: CA (occurrence: CA)
  Receive Date: 20190604
  Receipt Date: 20190611
  Transmission Date: 20190711
  Serious: Yes (Hospitalization)
  Sender: FDA-Public Use
  Company Number: CA-ACTELION-A-NJ2019-191219

PATIENT
  Sex: Female

DRUGS (5)
  1. DALTEPARIN [Concomitant]
     Active Substance: DALTEPARIN
  2. CARIPUL [Suspect]
     Active Substance: EPOPROSTENOL
     Indication: PULMONARY ARTERIAL HYPERTENSION
     Dosage: 15000 NG
     Route: 042
     Dates: start: 20190425
  3. TRACLEER [Suspect]
     Active Substance: BOSENTAN
     Indication: PULMONARY ARTERIAL HYPERTENSION
     Dosage: 125 MG, BID
     Route: 048
     Dates: start: 20190429
  4. CARIPUL [Suspect]
     Active Substance: EPOPROSTENOL
     Dosage: 30000 UNK
     Route: 042
  5. ADEMPAS [Concomitant]
     Active Substance: RIOCIGUAT

REACTIONS (1)
  - Hospitalisation [Unknown]
